FAERS Safety Report 9069423 (Version 1)
Quarter: 2013Q1

REPORT INFORMATION
  Report Type: Spontaneous
  Country: US (occurrence: US)
  Receive Date: 20130215
  Receipt Date: 20130215
  Transmission Date: 20140127
  Serious: No
  Sender: FDA-Public Use
  Company Number: US-ASTRAZENECA-2013SE08917

PATIENT
  Age: 70 Year
  Sex: Male

DRUGS (2)
  1. BUDESONIDE [Suspect]
     Dosage: 0.5 MG IN 2 ML, 1 DF TWO TIMES A DAY
     Route: 055
  2. NEXIUM [Suspect]
     Route: 048

REACTIONS (2)
  - Dyspnoea [Unknown]
  - Pain [Unknown]
